FAERS Safety Report 7056774-7 (Version None)
Quarter: 2010Q4

REPORT INFORMATION
  Report Type: 
  Country: None (occurrence: None)
  Receive Date: 20101022
  Receipt Date: 20101014
  Transmission Date: 20110411
  Serious: Yes (Other)
  Sender: FDA-Public Use
  Company Number: US-BIOGENIDEC-2010BI035842

PATIENT
  Age: 60 Year
  Sex: Female

DRUGS (3)
  1. AVONEX [Suspect]
     Indication: MULTIPLE SCLEROSIS
     Route: 030
     Dates: start: 20070810, end: 20071201
  2. AVONEX [Suspect]
     Route: 030
     Dates: start: 20080623
  3. ADVIL [Concomitant]
     Indication: PREMEDICATION

REACTIONS (3)
  - EYELID PTOSIS [None]
  - INFLUENZA LIKE ILLNESS [None]
  - RETINAL DETACHMENT [None]
